FAERS Safety Report 9769228 (Version 2)
Quarter: 2014Q1

REPORT INFORMATION
  Report Type: Spontaneous
  Country: GB (occurrence: GB)
  Receive Date: 20131218
  Receipt Date: 20140317
  Transmission Date: 20141002
  Serious: Yes (Disabling)
  Sender: FDA-Public Use
  Company Number: GB-ASTRAZENECA-2013SE90131

PATIENT
  Age: 50 Year
  Sex: Male
  Weight: 100 kg

DRUGS (27)
  1. BUDESONIDE [Suspect]
     Route: 055
     Dates: start: 20130806
  2. ALLOPURINOL [Concomitant]
     Dates: start: 20130805
  3. AMOXICILLIN [Concomitant]
     Dates: start: 20130906, end: 20130922
  4. ASPIRIN [Concomitant]
     Dates: start: 20130814
  5. ATORVASTATIN [Concomitant]
     Dates: start: 20130805
  6. BISOPROLOL [Concomitant]
     Dates: start: 20130814
  7. CARBOMER 980 [Concomitant]
     Dates: start: 20130806, end: 20130903
  8. CETIRIZINE [Concomitant]
     Dates: start: 20131105
  9. CITALOPRAM [Concomitant]
     Dates: start: 20130805
  10. CLONAZEPAM [Concomitant]
     Dates: start: 20130805
  11. EMOLLIENT BASE [Concomitant]
     Dates: start: 20130924, end: 20131113
  12. FINASTERIDE [Concomitant]
     Dates: start: 20130820
  13. FLUTICASONE [Concomitant]
     Dates: start: 20131125
  14. FUROSEMIDE [Concomitant]
     Dates: start: 20130805
  15. GLYCERYL TRINITRATE [Concomitant]
     Dates: start: 20130805, end: 20131121
  16. HYPROMELLOSE [Concomitant]
     Dates: start: 20130820
  17. LACRI-LUBE [Concomitant]
     Dates: start: 20130823, end: 20130920
  18. OMEPRAZOLE [Concomitant]
     Dates: start: 20130805
  19. PREDNISOLONE [Concomitant]
     Dates: start: 20131003, end: 20131013
  20. PREDNISOLONE [Concomitant]
     Dates: start: 20131021, end: 20131031
  21. RAMIPRIL [Concomitant]
     Dates: start: 20130805
  22. SALMETEROL [Concomitant]
     Dates: start: 20130805
  23. SPIRONOLACTONE [Concomitant]
     Dates: start: 20130814
  24. TAMSULOSIN HYDROCHLORIDE [Concomitant]
     Dates: start: 20130820
  25. THIAMINE [Concomitant]
     Dates: start: 20130820
  26. VENTOLIN [Concomitant]
     Dates: start: 20130806
  27. VITAMIN B SUBSTANCES [Concomitant]
     Dates: start: 20130805

REACTIONS (4)
  - Breath odour [Recovering/Resolving]
  - Chronic obstructive pulmonary disease [Recovering/Resolving]
  - Dyspnoea [Recovering/Resolving]
  - General physical health deterioration [Recovering/Resolving]
